FAERS Safety Report 17531575 (Version 1)
Quarter: 2020Q1

REPORT INFORMATION
  Report Type: Spontaneous
  Country: US (occurrence: US)
  Receive Date: 20200312
  Receipt Date: 20200312
  Transmission Date: 20200409
  Serious: No
  Sender: FDA-Public Use
  Company Number: US-MYLANLABS-2020M1023340

PATIENT
  Age: 30 Year
  Sex: Female
  Weight: 84 kg

DRUGS (2)
  1. SCOPOLAMINE TRANSDERMAL SYSTEM [Suspect]
     Active Substance: SCOPOLAMINE
     Indication: MORNING SICKNESS
     Dosage: 1 MILLIGRAM, Q3D
     Route: 062
  2. SCOPOLAMINE TRANSDERMAL SYSTEM [Suspect]
     Active Substance: SCOPOLAMINE
     Dosage: 1 MILLIGRAM, Q3D
     Route: 062

REACTIONS (3)
  - Product adhesion issue [Unknown]
  - Maternal exposure during pregnancy [Unknown]
  - Off label use [Not Recovered/Not Resolved]

NARRATIVE: CASE EVENT DATE: 202002
